FAERS Safety Report 8816862 (Version 1)
Quarter: 2012Q4

REPORT INFORMATION
  Report Type: Spontaneous
  Country: US (occurrence: None)
  Receive Date: 20121002
  Receipt Date: 20121002
  Transmission Date: 20130627
  Serious: No
  Sender: FDA-Public Use
  Company Number: None

PATIENT
  Age: 73 Year
  Sex: Female

DRUGS (1)
  1. ATORVASTATIN [Suspect]
     Dosage: 40mg At bedtime po
     Route: 048

REACTIONS (1)
  - Renal pain [None]
